FAERS Safety Report 9883622 (Version 1)
Quarter: 2014Q1

REPORT INFORMATION
  Report Type: Spontaneous
  Country: US (occurrence: US)
  Receive Date: 20140210
  Receipt Date: 20140210
  Transmission Date: 20141002
  Serious: Yes (Hospitalization)
  Sender: FDA-Public Use
  Company Number: US-ASTRAZENECA-2014SE08181

PATIENT
  Age: 23399 Day
  Sex: Female

DRUGS (12)
  1. BRILINTA [Suspect]
     Route: 048
     Dates: end: 20140204
  2. SYMBICORT PMDI [Suspect]
     Dosage: UNKNOWN DOSE AND FREQUENCY
     Route: 055
  3. CARDIZEM [Concomitant]
  4. IMDUR [Concomitant]
  5. PROTONIX [Concomitant]
  6. RANEXA [Concomitant]
  7. ZOCOR [Concomitant]
  8. SPIRIVA [Concomitant]
  9. ASPIRIN [Concomitant]
  10. CELEXA [Concomitant]
  11. DIOVAN [Concomitant]
  12. PLAVIX [Concomitant]
     Dates: start: 20140205

REACTIONS (2)
  - Chest pain [Unknown]
  - Dyspnoea [Unknown]
